FAERS Safety Report 7791151-2 (Version None)
Quarter: 2011Q4

REPORT INFORMATION
  Report Type: 
  Country: None (occurrence: None)
  Receive Date: 20111003
  Receipt Date: 20110922
  Transmission Date: 20120403
  Serious: No
  Sender: FDA-Public Use
  Company Number: US-BIOGENIDEC-2011BI036533

PATIENT
  Age: 58 Year
  Sex: Female

DRUGS (2)
  1. TYSABRI [Suspect]
     Route: 042
     Dates: start: 20090527, end: 20100519
  2. TYSABRI [Suspect]
     Indication: MULTIPLE SCLEROSIS
     Route: 042
     Dates: start: 20100816

REACTIONS (5)
  - STREPTOCOCCAL INFECTION [None]
  - MUSCLE TIGHTNESS [None]
  - MUSCLE SPASMS [None]
  - EYE DISORDER [None]
  - MUSCULOSKELETAL STIFFNESS [None]
